FAERS Safety Report 20034563 (Version 1)
Quarter: 2021Q4

REPORT INFORMATION
  Report Type: Spontaneous
  Country: DE (occurrence: DE)
  Receive Date: 20211104
  Receipt Date: 20211104
  Transmission Date: 20220303
  Serious: Yes (Hospitalization, Other)
  Sender: FDA-Public Use
  Company Number: DE-ADRED-06980-01

PATIENT
  Age: 87 Year
  Sex: Female
  Weight: 65 kg

DRUGS (7)
  1. RISPERIDONE [Suspect]
     Active Substance: RISPERIDONE
     Indication: Product used for unknown indication
     Dosage: UNK, QD
  2. METOPROLOL [Suspect]
     Active Substance: METOPROLOL
     Indication: Product used for unknown indication
     Dosage: 95 MILLIGRAM, QD
  3. TOREMIFENE [Suspect]
     Active Substance: TOREMIFENE
     Indication: Product used for unknown indication
     Dosage: 10 MG, 1-0-0-0
  4. CYANOCOBALAMIN [Concomitant]
     Active Substance: CYANOCOBALAMIN
     Dosage: UNK, QD
  5. LOPERAMIDE [Concomitant]
     Active Substance: LOPERAMIDE
     Dosage: 2 MILLIGRAM, BID
  6. FOLIC ACID [Concomitant]
     Active Substance: FOLIC ACID
     Dosage: 5 MILLIGRAM, QD
  7. PHENPROCOUMON [Concomitant]
     Active Substance: PHENPROCOUMON
     Dosage: 3 MILLIGRAM, QD

REACTIONS (6)
  - Atrial fibrillation [Unknown]
  - Bradycardia [Unknown]
  - General physical health deterioration [Unknown]
  - Urinary incontinence [Unknown]
  - Electrocardiogram abnormal [Unknown]
  - Decubitus ulcer [Unknown]
